FAERS Safety Report 12074559 (Version 1)
Quarter: 2016Q1

REPORT INFORMATION
  Report Type: Spontaneous
  Country: US (occurrence: US)
  Receive Date: 20160212
  Receipt Date: 20160212
  Transmission Date: 20160526
  Serious: No
  Sender: FDA-Public Use
  Company Number: US-LANTHEUS-LMI-2015-00251

PATIENT
  Sex: Male

DRUGS (1)
  1. ABLAVAR [Suspect]
     Active Substance: GADOFOSVESET TRISODIUM
     Indication: PRODUCT USED FOR UNKNOWN INDICATION
     Dosage: DILUTION DETAILS NOT PROVIDED
     Route: 040
     Dates: start: 20150508, end: 20150508

REACTIONS (1)
  - Expired product administered [Recovered/Resolved]

NARRATIVE: CASE EVENT DATE: 20150508
